FAERS Safety Report 19355517 (Version 1)
Quarter: 2021Q2

REPORT INFORMATION
  Report Type: Spontaneous
  Country: US (occurrence: US)
  Receive Date: 20210601
  Receipt Date: 20210601
  Transmission Date: 20210717
  Serious: Yes (Hospitalization)
  Sender: FDA-Public Use
  Company Number: None

PATIENT
  Age: 76 Year
  Sex: Female

DRUGS (20)
  1. FUROSEMIDE. [Concomitant]
     Active Substance: FUROSEMIDE
  2. METHOTREXATE. [Concomitant]
     Active Substance: METHOTREXATE
  3. OXYCODONE [Concomitant]
     Active Substance: OXYCODONE
  4. TRAMADOL. [Concomitant]
     Active Substance: TRAMADOL
  5. HYDRALAZINE [Concomitant]
     Active Substance: HYDRALAZINE HYDROCHLORIDE
  6. LISINOPRIL. [Concomitant]
     Active Substance: LISINOPRIL
  7. POT CHLORIDE [Concomitant]
     Active Substance: POTASSIUM CHLORIDE
  8. ENBREL [Suspect]
     Active Substance: ETANERCEPT
     Indication: PRODUCT USED FOR UNKNOWN INDICATION
  9. ATENOLOL. [Concomitant]
     Active Substance: ATENOLOL
  10. OXYBUTININ [Concomitant]
     Active Substance: OXYBUTYNIN
  11. DULOXETINE. [Concomitant]
     Active Substance: DULOXETINE
  12. PREDNISONE. [Concomitant]
     Active Substance: PREDNISONE
  13. ELIQUIS [Concomitant]
     Active Substance: APIXABAN
  14. MAG OXIDE [Concomitant]
     Active Substance: MAGNESIUM OXIDE
  15. METOPROLOL. [Concomitant]
     Active Substance: METOPROLOL
  16. CLONIDINE. [Concomitant]
     Active Substance: CLONIDINE
  17. DONEPEZIL. [Concomitant]
     Active Substance: DONEPEZIL
  18. TIZANDINE [Concomitant]
     Active Substance: TIZANIDINE
  19. ARNLODIPINE [Concomitant]
  20. FOLIC ACID. [Concomitant]
     Active Substance: FOLIC ACID

REACTIONS (5)
  - Cerebrovascular accident [None]
  - Arthralgia [None]
  - Peripheral swelling [None]
  - Condition aggravated [None]
  - Therapy interrupted [None]
